FAERS Safety Report 9074030 (Version 1)
Quarter: 2013Q1

REPORT INFORMATION
  Report Type: Spontaneous
  Country: US (occurrence: US)
  Receive Date: 20130129
  Receipt Date: 20130129
  Transmission Date: 20140127
  Serious: No
  Sender: FDA-Public Use
  Company Number: US-ABBOTT-12P-163-0919304-00

PATIENT
  Sex: Female
  Weight: 111.23 kg

DRUGS (2)
  1. HUMIRA 40 MG/ 0.8 ML PRE-FILLED SYRINGE [Suspect]
     Indication: PSORIASIS
     Route: 065
  2. REMICADE [Suspect]
     Indication: PSORIASIS
     Route: 042
     Dates: start: 2008, end: 2008

REACTIONS (3)
  - Cardiac failure [Recovered/Resolved]
  - Therapeutic response decreased [Unknown]
  - Hypersensitivity [Unknown]
